FAERS Safety Report 5217913-3 (Version None)
Quarter: 2006Q4

REPORT INFORMATION
  Report Type: 
  Country: None (occurrence: None)
  Receive Date: 20061130
  Receipt Date: 20060804
  Transmission Date: 20070319
  Serious: Yes (Hospitalization)
  Sender: FDA-Public Use
  Company Number: US200608001062

PATIENT
  Age: 23 Year
  Sex: Male

DRUGS (4)
  1. ZYPREXA [Suspect]
     Dosage: 10 MG
  2. ZYPREXA ZYDIS [Suspect]
     Dosage: SEE IMAGE
  3. HALDOL SOLUTAB [Concomitant]
  4. CLONAZEPAM [Concomitant]

REACTIONS (7)
  - DELUSION [None]
  - DRUG EFFECT DECREASED [None]
  - FATIGUE [None]
  - HEPATIC ENZYME INCREASED [None]
  - PARANOIA [None]
  - RASH [None]
  - SOMNOLENCE [None]
